FAERS Safety Report 20305146 (Version 1)
Quarter: 2022Q1

REPORT INFORMATION
  Report Type: Spontaneous
  Country: US (occurrence: US)
  Receive Date: 20220106
  Receipt Date: 20220106
  Transmission Date: 20220423
  Serious: Yes (Hospitalization, Other)
  Sender: FDA-Public Use
  Company Number: US-FRESENIUS KABI-FK202114784

PATIENT
  Sex: Female
  Weight: 58 kg

DRUGS (15)
  1. ETOPOSIDE [Suspect]
     Active Substance: ETOPOSIDE
     Indication: Small cell lung cancer limited stage
     Dosage: 100 MG, 3X/WEEK
     Route: 042
     Dates: start: 2021
  2. AMIFAMPRIDINE PHOSPHATE [Suspect]
     Active Substance: AMIFAMPRIDINE PHOSPHATE
     Indication: Small cell lung cancer limited stage
     Dosage: FIRDAPSE (AMIFAMPRIDINE) TABLET, 10 MG ?20 MG, 4X/DAY
     Route: 048
     Dates: start: 20210503
  3. AMIFAMPRIDINE PHOSPHATE [Suspect]
     Active Substance: AMIFAMPRIDINE PHOSPHATE
     Indication: Myasthenic syndrome
     Dosage: 20 MG, 4X/DAY
     Route: 048
     Dates: start: 20210503
  4. CARBOPLATIN [Suspect]
     Active Substance: CARBOPLATIN
     Indication: Small cell lung cancer limited stage
     Dosage: 150 MG, 1X/WEEK
     Route: 042
     Dates: start: 2021
  5. ATOVAQUONE [Concomitant]
     Active Substance: ATOVAQUONE
     Indication: Prophylaxis
     Dosage: MEPRON (ATOVAQUONE) 1X/DAY FOR PROPHYLAXIS OF PNEUMONIA
     Route: 065
  6. ATOVAQUONE [Concomitant]
     Active Substance: ATOVAQUONE
     Indication: Pneumonia
  7. PYRIDOSTIGMINE BROMIDE [Concomitant]
     Active Substance: PYRIDOSTIGMINE BROMIDE
     Indication: Product used for unknown indication
     Dosage: MESTINON (PYRIDOSTIGMINE BROMIDE) 60 MG 3X/DAY
     Route: 065
  8. BUPROPION HYDROCHLORIDE [Concomitant]
     Active Substance: BUPROPION HYDROCHLORIDE
     Indication: Product used for unknown indication
     Dosage: WELLBUTRIN XL (BUPROPION HYDROCHLORIDE) 450 MG 1X/DAY
     Route: 065
  9. PREDNISONE [Concomitant]
     Active Substance: PREDNISONE
     Indication: Product used for unknown indication
     Dosage: PREDNISONE 3 MG 1X/DAY
     Route: 065
  10. PREDNISONE [Concomitant]
     Active Substance: PREDNISONE
     Route: 065
     Dates: start: 2021
  11. ENALAPRIL [Concomitant]
     Active Substance: ENALAPRIL
     Indication: Product used for unknown indication
     Dosage: 10 MG 1X/DAY
     Route: 065
  12. AMLODIPINE [Concomitant]
     Active Substance: AMLODIPINE BESYLATE
     Indication: Product used for unknown indication
     Dosage: AMLODIPINE 5 MG 1X/DAY
     Route: 065
  13. PANTOPRAZOLE SODIUM [Concomitant]
     Active Substance: PANTOPRAZOLE SODIUM
     Indication: Product used for unknown indication
     Dosage: PROTONIX (PANTOPRAZOLE SODIUM) 1X/DAY
     Route: 065
  14. SUCRALFATE [Concomitant]
     Active Substance: SUCRALFATE
     Indication: Product used for unknown indication
     Dosage: CARAFATE (SUCRALFATE) 1 TABLET EVERY 6 HOURS
  15. ONDANSETRON HYDROCHLORIDE [Concomitant]
     Active Substance: ONDANSETRON HYDROCHLORIDE
     Indication: Product used for unknown indication
     Dosage: ZOFRAN (ONDANSETRON HYDROCHLORIDE) AS NEEDED
     Route: 065

REACTIONS (25)
  - Diverticulitis [Unknown]
  - Deep vein thrombosis [Unknown]
  - Sepsis [Unknown]
  - Abdominal abscess [Unknown]
  - Pneumonia [Unknown]
  - Diplopia [Unknown]
  - Hypokalaemia [Unknown]
  - Melaena [Unknown]
  - Peripheral swelling [Unknown]
  - Procedural pain [Unknown]
  - Stoma site discharge [Unknown]
  - White blood cell count increased [Unknown]
  - Leukocytosis [Unknown]
  - Condition aggravated [Unknown]
  - Neutrophil count decreased [Unknown]
  - Thrombocytopenia [Unknown]
  - Constipation [Unknown]
  - Pyrexia [Unknown]
  - Diarrhoea [Unknown]
  - Asthenia [Unknown]
  - Dyspnoea [Unknown]
  - Anaemia [Unknown]
  - Abdominal pain upper [Unknown]
  - Fatigue [Unknown]
  - Febrile neutropenia [Unknown]

NARRATIVE: CASE EVENT DATE: 20210101
